FAERS Safety Report 8914892 (Version 1)
Quarter: 2012Q4

REPORT INFORMATION
  Report Type: 
  Country: FR (occurrence: FR)
  Receive Date: 20121119
  Receipt Date: 20121119
  Transmission Date: 20130627
  Serious: Yes (Hospitalization)
  Sender: FDA-Public Use
  Company Number: FR-ROCHE-1156559

PATIENT
  Age: 68 Year
  Sex: Male

DRUGS (3)
  1. AVASTIN [Suspect]
     Indication: GLIOBLASTOMA
     Route: 042
     Dates: start: 20120912
  2. BICNU [Suspect]
     Indication: GLIOBLASTOMA
     Route: 042
     Dates: start: 20120923
  3. TEMODAL [Concomitant]

REACTIONS (4)
  - Thrombocytopenia [Recovering/Resolving]
  - Petechiae [Recovered/Resolved]
  - Neutropenia [Recovered/Resolved]
  - Leukopenia [Recovered/Resolved]
